FAERS Safety Report 4655880-1 (Version None)
Quarter: 2005Q2

REPORT INFORMATION
  Report Type: 
  Country: None (occurrence: None)
  Receive Date: 20050505
  Receipt Date: 20050426
  Transmission Date: 20051028
  Serious: Yes (Hospitalization, Other)
  Sender: FDA-Public Use
  Company Number: 2005061521

PATIENT
  Age: 59 Year
  Sex: Male

DRUGS (9)
  1. LIPITOR [Suspect]
     Indication: HYPERLIPIDAEMIA
     Dosage: 10 MG (1 IN 1 D), ORAL
     Route: 048
     Dates: start: 20020713, end: 20050408
  2. ASPIRIN [Concomitant]
  3. LANSOPRAZOLE (LANSOPRAOZLE) [Concomitant]
  4. CARVEDILOL [Concomitant]
  5. NICORANDIL (NICORANDIL) [Concomitant]
  6. TEPRENONE (TEPRENONE) [Concomitant]
  7. ISOSORBIDE DINITRATE [Concomitant]
  8. TICLOPIDINE HCL [Concomitant]
  9. FLECAINIDE ACETATE [Concomitant]

REACTIONS (12)
  - ANGIOPLASTY [None]
  - ARTHRALGIA [None]
  - ARTHRITIS [None]
  - CHEST PAIN [None]
  - COLLAGEN DISORDER [None]
  - CORONARY ARTERY SURGERY [None]
  - GRANULOCYTE COUNT DECREASED [None]
  - MYALGIA [None]
  - PAIN [None]
  - PLEURAL EFFUSION [None]
  - PLEURISY [None]
  - PYREXIA [None]
